FAERS Safety Report 6453712-2 (Version None)
Quarter: 2009Q4

REPORT INFORMATION
  Report Type: 
  Country: None (occurrence: None)
  Receive Date: 20091124
  Receipt Date: 20090904
  Transmission Date: 20100525
  Serious: Yes (Other)
  Sender: FDA-Public Use
  Company Number: US-AMGEN-US347481

PATIENT
  Sex: Female

DRUGS (3)
  1. NPLATE [Suspect]
     Indication: IDIOPATHIC THROMBOCYTOPENIC PURPURA
     Route: 058
     Dates: start: 20081027, end: 20081111
  2. CORTICOSTEROIDS [Concomitant]
     Route: 065
     Dates: start: 20080808
  3. IMMUNOGLOBULINS [Concomitant]
     Dates: start: 20081006, end: 20081011

REACTIONS (1)
  - DRUG INEFFECTIVE [None]
